FAERS Safety Report 15018065 (Version 1)
Quarter: 2018Q2

REPORT INFORMATION
  Report Type: Spontaneous
  Country: US (occurrence: US)
  Receive Date: 20180615
  Receipt Date: 20180615
  Transmission Date: 20180711
  Serious: Yes (Hospitalization, Other)
  Sender: FDA-Public Use
  Company Number: US-ASTRAZENECA-2018SE77985

PATIENT
  Age: 48 Year
  Sex: Male
  Weight: 100 kg

DRUGS (1)
  1. NEXIUM 24HR [Suspect]
     Active Substance: ESOMEPRAZOLE MAGNESIUM
     Indication: GASTROOESOPHAGEAL REFLUX DISEASE
     Route: 048

REACTIONS (10)
  - Abdominal pain upper [Unknown]
  - Back pain [Not Recovered/Not Resolved]
  - Hiatus hernia [Unknown]
  - Blood pressure increased [Recovering/Resolving]
  - Chest pain [Unknown]
  - Gastritis [Unknown]
  - Abdominal distension [Recovering/Resolving]
  - Pancreatitis [Unknown]
  - Constipation [Unknown]
  - Eating disorder [Unknown]

NARRATIVE: CASE EVENT DATE: 2018
